FAERS Safety Report 16271022 (Version 3)
Quarter: 2022Q1

REPORT INFORMATION
  Report Type: Report from Study
  Country: GB (occurrence: GB)
  Receive Date: 20190503
  Receipt Date: 20220330
  Transmission Date: 20220423
  Serious: Yes (Hospitalization)
  Sender: FDA-Public Use
  Company Number: GB-JAZZ-2017-GB-011708

PATIENT
  Age: 64 Year
  Sex: Female

DRUGS (1)
  1. CYTARABINE\DAUNORUBICIN [Suspect]
     Active Substance: CYTARABINE\DAUNORUBICIN
     Indication: Acute myeloid leukaemia
     Dosage: 100 MILLIGRAM/SQ. METER
     Route: 042
     Dates: start: 20170712, end: 20170716

REACTIONS (2)
  - Hepatotoxicity [Recovered/Resolved with Sequelae]
  - Aspartate aminotransferase increased [Recovered/Resolved]

NARRATIVE: CASE EVENT DATE: 20170725
